FAERS Safety Report 14112697 (Version 3)
Quarter: 2023Q4

REPORT INFORMATION
  Report Type: Spontaneous
  Country: US (occurrence: US)
  Receive Date: 20171021
  Receipt Date: 20231212
  Transmission Date: 20240110
  Serious: Yes (Other)
  Sender: FDA-Public Use
  Company Number: US-AUROBINDO-AUR-APL-2017-41956

PATIENT
  Age: 61 Year
  Sex: Female

DRUGS (3)
  1. IBUPROFEN [Interacting]
     Active Substance: IBUPROFEN
     Indication: Arthralgia
     Dosage: UNK (TAKEN AS NEEDED PRIOR TO HYDROXYCHLOROQUINE THERAPY AND LATER TAKEN THROUGHOUT)
     Route: 065
  2. HYDROXYCHLOROQUINE [Interacting]
     Active Substance: HYDROXYCHLOROQUINE
     Indication: Arthralgia
     Dosage: 400 MILLIGRAM, DAILY (400 MG/DAY AND AFTER ONE WEEK DECREASED TO 200 MG/DAY)
     Route: 065
     Dates: start: 201501
  3. HYDROXYCHLOROQUINE [Interacting]
     Active Substance: HYDROXYCHLOROQUINE
     Dosage: 200 MILLIGRAM, DAILY (DECREASED TO 200 MG/DAY)
     Route: 065
     Dates: start: 201501, end: 201504

REACTIONS (4)
  - Retinopathy [Not Recovered/Not Resolved]
  - Drug interaction [Not Recovered/Not Resolved]
  - Toxicity to various agents [Not Recovered/Not Resolved]
  - Dizziness [Unknown]

NARRATIVE: CASE EVENT DATE: 20150301
